FAERS Safety Report 12708296 (Version 2)
Quarter: 2016Q3

REPORT INFORMATION
  Report Type: Spontaneous
  Country: US (occurrence: US)
  Receive Date: 20160901
  Receipt Date: 20160914
  Transmission Date: 20161109
  Serious: Yes (Hospitalization, Other)
  Sender: FDA-Public Use
  Company Number: US-BAYER-2016-165394

PATIENT
  Age: 64 Year
  Sex: Female

DRUGS (2)
  1. RID 1-2-3 SYSTEM [Suspect]
     Active Substance: PIPERONYL BUTOXIDE\PYRETHRUM EXTRACT
     Dosage: UNK
     Dates: start: 20141004, end: 20141004
  2. LISINOPRIL. [Concomitant]
     Active Substance: LISINOPRIL
     Dosage: 5 MG, UNK

REACTIONS (29)
  - Skin necrosis [None]
  - Blister [None]
  - Skin lesion [None]
  - Chills [None]
  - Abscess [None]
  - Localised infection [None]
  - Impaired healing [None]
  - Chemical injury [None]
  - Condition aggravated [None]
  - Skin graft [None]
  - Purulent discharge [None]
  - Mobility decreased [None]
  - Necrosis [None]
  - Pain [None]
  - Renal failure [None]
  - Hypoaesthesia [None]
  - Oedema peripheral [None]
  - Septic arthritis streptococcal [None]
  - Peripheral swelling [None]
  - Rash pustular [None]
  - Eschar [None]
  - Rash [None]
  - Enterobacter infection [None]
  - Localised infection [None]
  - Myositis [None]
  - Skin discolouration [None]
  - Cellulitis [None]
  - Joint range of motion decreased [None]
  - Musculoskeletal pain [None]

NARRATIVE: CASE EVENT DATE: 201410
